FAERS Safety Report 21016154 (Version 1)
Quarter: 2022Q2

REPORT INFORMATION
  Report Type: Spontaneous
  Country: US (occurrence: None)
  Receive Date: 20220627
  Receipt Date: 20220627
  Transmission Date: 20220721
  Serious: No
  Sender: FDA-Public Use
  Company Number: None

PATIENT
  Age: 62 Year
  Sex: Female
  Weight: 68.04 kg

DRUGS (2)
  1. COSENTYX [Suspect]
     Active Substance: SECUKINUMAB
     Indication: Psoriasis
     Dosage: INJECTE 300MG (2 PENS) SUBCUTANEOUSLY EVERY  WEEK FOR 5 WEEKS AS DIRECTED
     Route: 058
     Dates: start: 202012
  2. OTEZLA [Suspect]
     Active Substance: APREMILAST
     Indication: Psoriasis
     Dosage: TAKE 1 TABLET BY MOUTH TWICE DAILY  AS DIRECTED   ?
     Route: 048
     Dates: start: 202202

REACTIONS (1)
  - Cardiac disorder [None]
